FAERS Safety Report 4338059-2 (Version None)
Quarter: 2004Q2

REPORT INFORMATION
  Report Type: 
  Country: None (occurrence: None)
  Receive Date: 20040407
  Receipt Date: 20040329
  Transmission Date: 20050107
  Serious: Yes (Hospitalization, Other)
  Sender: FDA-Public Use
  Company Number: DE-JNJFOC-20040306273

PATIENT
  Age: 60 Year
  Sex: Female
  Weight: 130 kg

DRUGS (5)
  1. DOXORUBICIN HCL [Suspect]
     Indication: ENDOMETRIAL CANCER
     Dosage: 84 MG, INTRAVENOUS
     Route: 042
     Dates: start: 20031101
  2. FORTECORTIN (DEXAMETHASONE) TABLETS [Concomitant]
  3. VITAMIN B6 (PYRIDOXINE HYDROCHLORIDE) TABLETS [Concomitant]
  4. BISOPROLOL (BISOPROLOL) TABLETS [Concomitant]
  5. AQUAPHOR (AQUAPHOR) TABLETS [Concomitant]

REACTIONS (5)
  - ASPARTATE AMINOTRANSFERASE INCREASED [None]
  - BLOOD AMYLASE INCREASED [None]
  - BLOOD BILIRUBIN INCREASED [None]
  - DYSPNOEA [None]
  - GAMMA-GLUTAMYLTRANSFERASE INCREASED [None]
